FAERS Safety Report 10269958 (Version 1)
Quarter: 2014Q2

REPORT INFORMATION
  Report Type: Spontaneous
  Country: FR (occurrence: None)
  Receive Date: 20140625
  Receipt Date: 20140625
  Transmission Date: 20141212
  Serious: Yes (Other)
  Sender: FDA-Public Use
  Company Number: 2406448

PATIENT
  Sex: 0

DRUGS (3)
  1. EPIRUBICIN HYDROCHLORIDE [Suspect]
  2. FLUOROURACIL [Suspect]
  3. CYCLOPHOSPHAMIDE [Suspect]

REACTIONS (4)
  - Thrombocytopenia [None]
  - Transaminases increased [None]
  - Alanine aminotransferase increased [None]
  - Maternal drugs affecting foetus [None]
